FAERS Safety Report 8401885-4 (Version None)
Quarter: 2012Q2

REPORT INFORMATION
  Report Type: 
  Country: None (occurrence: None)
  Receive Date: 20120601
  Receipt Date: 20111003
  Transmission Date: 20120825
  Serious: No
  Sender: FDA-Public Use
  Company Number: US-ABBOTT-11P-163-0861031-00

PATIENT
  Sex: Female

DRUGS (4)
  1. MARINOL [Suspect]
     Indication: INCREASED APPETITE
     Dates: start: 20110901
  2. FUROSEMIDE [Concomitant]
     Indication: HYPERTENSION
  3. POTASSIUM CHLORIDE [Concomitant]
     Indication: MINERAL SUPPLEMENTATION
  4. NAMENDA [Concomitant]
     Indication: DEMENTIA ALZHEIMER'S TYPE

REACTIONS (1)
  - DECREASED APPETITE [None]
